FAERS Safety Report 25565367 (Version 1)
Quarter: 2025Q3

REPORT INFORMATION
  Report Type: Spontaneous
  Country: US (occurrence: None)
  Receive Date: 20250716
  Receipt Date: 20250716
  Transmission Date: 20251020
  Serious: Yes (Hospitalization)
  Sender: FDA-CTU
  Company Number: None

PATIENT
  Age: 17 Year
  Sex: Female
  Weight: 59.3 kg

DRUGS (6)
  1. CYCLOPHOSPHAMIDE [Suspect]
     Active Substance: CYCLOPHOSPHAMIDE
     Dates: end: 20250704
  2. DOXORUBICIN HYDROCHLORIDE [Suspect]
     Active Substance: DOXORUBICIN HYDROCHLORIDE
     Dates: end: 20250703
  3. ETOPOSIDE [Suspect]
     Active Substance: ETOPOSIDE
     Dates: end: 20250703
  4. PREDNISONE [Suspect]
     Active Substance: PREDNISONE
     Dates: end: 20250704
  5. RITUXIMAB [Suspect]
     Active Substance: RITUXIMAB
     Dates: start: 20250630
  6. VINCRISTINE SULFATE [Suspect]
     Active Substance: VINCRISTINE SULFATE
     Dates: end: 20250703

REACTIONS (3)
  - Pancytopenia [None]
  - Skin infection [None]
  - Staphylococcal infection [None]

NARRATIVE: CASE EVENT DATE: 20250712
